FAERS Safety Report 8105209-1 (Version None)
Quarter: 2012Q1

REPORT INFORMATION
  Report Type: 
  Country: None (occurrence: None)
  Receive Date: 20120201
  Receipt Date: 20120125
  Transmission Date: 20120608
  Serious: No
  Sender: FDA-Public Use
  Company Number: US-BAYER-2012-009742

PATIENT
  Age: 12 Year

DRUGS (2)
  1. ULTRAVIST 150 [Suspect]
     Indication: COMPUTERISED TOMOGRAM
     Dosage: 40 ML, ONCE
     Dates: start: 20120112, end: 20120112
  2. CONTRAST MEDIA [Concomitant]

REACTIONS (1)
  - URTICARIA [None]
